FAERS Safety Report 24183497 (Version 1)
Quarter: 2024Q3

REPORT INFORMATION
  Report Type: Spontaneous
  Country: IT (occurrence: IT)
  Receive Date: 20240807
  Receipt Date: 20240807
  Transmission Date: 20241017
  Serious: Yes (Other)
  Sender: AMGEN
  Company Number: IT-AMGEN-ITASP2024155074

PATIENT

DRUGS (1)
  1. ADALIMUMAB [Suspect]
     Active Substance: ADALIMUMAB
     Indication: Psoriasis
     Dosage: UNK
     Route: 065

REACTIONS (32)
  - Neoplasm malignant [Unknown]
  - Hepatobiliary disease [Unknown]
  - Blood disorder [Unknown]
  - Lymphatic disorder [Unknown]
  - Cardiac disorder [Unknown]
  - Ear disorder [Unknown]
  - Endocrine disorder [Unknown]
  - Eye disorder [Unknown]
  - Discomfort [Unknown]
  - Immune system disorder [Unknown]
  - Metabolic disorder [Unknown]
  - Malnutrition [Unknown]
  - Musculoskeletal disorder [Unknown]
  - Connective tissue disorder [Unknown]
  - Nervous system disorder [Unknown]
  - Mental disorder [Unknown]
  - Urinary tract disorder [Unknown]
  - Renal disorder [Unknown]
  - Reproductive tract disorder [Unknown]
  - Breast disorder [Unknown]
  - Respiratory disorder [Unknown]
  - Skin disorder [Unknown]
  - Angiopathy [Unknown]
  - Congenital anomaly [Unknown]
  - Social problem [Unknown]
  - Investigation abnormal [Unknown]
  - Gastrointestinal disorder [Unknown]
  - Injury [Unknown]
  - Surgery [Unknown]
  - Infection [Unknown]
  - Benign neoplasm [Unknown]
  - Product quality issue [Unknown]
